FAERS Safety Report 13543490 (Version 1)
Quarter: 2017Q2

REPORT INFORMATION
  Report Type: Spontaneous
  Country: SG (occurrence: SG)
  Receive Date: 20170515
  Receipt Date: 20170515
  Transmission Date: 20170830
  Serious: Yes (Other)
  Sender: FDA-Public Use
  Company Number: SG-AMGEN-SGPSP2017072121

PATIENT
  Age: 64 Year
  Sex: Male

DRUGS (1)
  1. IVABRADINE [Suspect]
     Active Substance: IVABRADINE
     Indication: PRODUCT USED FOR UNKNOWN INDICATION
     Dosage: UNK
     Route: 065

REACTIONS (4)
  - Skin disorder [Unknown]
  - Dyspnoea [Unknown]
  - Chest discomfort [Unknown]
  - Swelling [Unknown]

NARRATIVE: CASE EVENT DATE: 20170131
